FAERS Safety Report 8886704 (Version 1)
Quarter: 2012Q4

REPORT INFORMATION
  Report Type: 
  Country: US (occurrence: US)
  Receive Date: 20121105
  Receipt Date: 20121105
  Transmission Date: 20130627
  Serious: No
  Sender: FDA-Public Use
  Company Number: US-VERTEX PHARMACEUTICAL INC.-2012-023999

PATIENT
  Sex: Male
  Weight: 73.5 kg

DRUGS (6)
  1. VX-950 [Suspect]
     Indication: HEPATITIS C
     Dosage: 750 mg, tid
     Route: 048
     Dates: start: 2012
  2. PEGASYS [Concomitant]
     Indication: HEPATITIS C
     Dosage: 180 ?g, qw
     Route: 058
     Dates: start: 2012
  3. RIBASPHERE [Concomitant]
     Indication: HEPATITIS C
     Dosage: 600 mg, tid
     Dates: start: 2012
  4. HYDROCHLOROTHIAZIDE [Concomitant]
     Dosage: 25 mg, qd
  5. LISINOPRIL [Concomitant]
     Dosage: 40 mg, qd
  6. VERAPAMIL [Concomitant]
     Dosage: 360 mg, UNK

REACTIONS (3)
  - Dry skin [Unknown]
  - Injection site bruising [Unknown]
  - Injection site anaesthesia [Unknown]
